FAERS Safety Report 5674966-6 (Version None)
Quarter: 2008Q1

REPORT INFORMATION
  Report Type: 
  Country: None (occurrence: None)
  Receive Date: 20080320
  Receipt Date: 20080311
  Transmission Date: 20080703
  Serious: Yes (Other)
  Sender: FDA-Public Use
  Company Number: JP-PFIZER INC-2008020840

PATIENT
  Sex: Female
  Weight: 46 kg

DRUGS (16)
  1. EPLERENONE [Suspect]
     Route: 048
     Dates: start: 20071215, end: 20080216
  2. NU LOTAN [Concomitant]
  3. NORVASC [Concomitant]
  4. ARTIST [Concomitant]
  5. TORSEMIDE [Concomitant]
  6. ALDACTONE [Concomitant]
  7. LIVALO [Concomitant]
  8. FAMOTIDINE [Concomitant]
  9. BASEN [Concomitant]
  10. DIAZEPAM [Concomitant]
  11. HALCION [Concomitant]
  12. AMARYL [Concomitant]
  13. ORCL [Concomitant]
  14. PREDNISONE [Concomitant]
  15. ALFAROL [Concomitant]
  16. MESALAMINE [Concomitant]

REACTIONS (1)
  - LIVER DISORDER [None]
